FAERS Safety Report 21337020 (Version 1)
Quarter: 2022Q3

REPORT INFORMATION
  Report Type: Spontaneous
  Country: US (occurrence: US)
  Receive Date: 20220915
  Receipt Date: 20220915
  Transmission Date: 20221026
  Serious: Yes (Hospitalization, Other)
  Sender: FDA-Public Use
  Company Number: US-BAYER-2022A125630

PATIENT
  Age: 72 Year
  Sex: Female

DRUGS (1)
  1. REGORAFENIB [Suspect]
     Active Substance: REGORAFENIB
     Dosage: UNK

REACTIONS (19)
  - Stress cardiomyopathy [None]
  - Left ventricle outflow tract obstruction [Recovered/Resolved]
  - Hypotension [Recovered/Resolved]
  - Dyspnoea exertional [None]
  - Atrial fibrillation [None]
  - Non-small cell lung cancer [None]
  - Electrocardiogram ST segment elevation [None]
  - Troponin increased [None]
  - Ejection fraction decreased [Recovering/Resolving]
  - Ventricular hypokinesia [None]
  - Ventricular hyperkinesia [None]
  - Dyspnoea [None]
  - Tachypnoea [None]
  - Blood pressure systolic increased [Recovering/Resolving]
  - Cardiac murmur [None]
  - Rales [None]
  - White blood cell count increased [None]
  - Left ventricular dysfunction [None]
  - Systolic anterior motion of mitral valve [None]
